FAERS Safety Report 17556663 (Version 23)
Quarter: 2025Q2

REPORT INFORMATION
  Report Type: Report from Study
  Country: US (occurrence: US)
  Receive Date: 20200318
  Receipt Date: 20250423
  Transmission Date: 20250716
  Serious: Yes (Hospitalization, Other)
  Sender: TAKEDA
  Company Number: US-SHIRE-US202010202

PATIENT
  Age: 62 Year
  Sex: Female
  Weight: 48 kg

DRUGS (67)
  1. HUMAN IMMUNOGLOBULIN G [Suspect]
     Active Substance: HUMAN IMMUNOGLOBULIN G
     Indication: Immunodeficiency common variable
  2. HUMAN IMMUNOGLOBULIN G [Suspect]
     Active Substance: HUMAN IMMUNOGLOBULIN G
     Indication: Immunodeficiency
     Dosage: 10 GRAM, 1/WEEK
     Dates: start: 20140602
  3. HUMAN IMMUNOGLOBULIN G [Suspect]
     Active Substance: HUMAN IMMUNOGLOBULIN G
     Dosage: 12 GRAM, 1/WEEK
  4. ACETAMINOPHEN [Concomitant]
     Active Substance: ACETAMINOPHEN
  5. EPINEPHRINE [Concomitant]
     Active Substance: EPINEPHRINE
  6. POTASSIUM CHLORIDE [Concomitant]
     Active Substance: POTASSIUM CHLORIDE
  7. NIFEDIPINE [Concomitant]
     Active Substance: NIFEDIPINE
  8. MELOXICAM [Concomitant]
     Active Substance: MELOXICAM
  9. CLONIDINE HYDROCHLORIDE [Concomitant]
     Active Substance: CLONIDINE HYDROCHLORIDE
  10. METOPROLOL TARTRATE [Concomitant]
     Active Substance: METOPROLOL TARTRATE
  11. MAGNESIUM [Concomitant]
     Active Substance: MAGNESIUM
  12. SOLU-CORTEF [Concomitant]
     Active Substance: HYDROCORTISONE SODIUM SUCCINATE
  13. BREO ELLIPTA [Concomitant]
     Active Substance: FLUTICASONE FUROATE\VILANTEROL TRIFENATATE
  14. METRONIDAZOLE [Concomitant]
     Active Substance: METRONIDAZOLE
  15. SYNTHROID [Concomitant]
     Active Substance: LEVOTHYROXINE SODIUM
  16. LEFLUNOMIDE [Concomitant]
     Active Substance: LEFLUNOMIDE
  17. FOLIC ACID [Concomitant]
     Active Substance: FOLIC ACID
  18. SINGULAIR [Concomitant]
     Active Substance: MONTELUKAST SODIUM
  19. PROLIA [Concomitant]
     Active Substance: DENOSUMAB
  20. AZELASTINE HYDROCHLORIDE [Concomitant]
     Active Substance: AZELASTINE HYDROCHLORIDE
  21. VITAMIN D [Concomitant]
     Active Substance: VITAMIN D NOS
  22. TORSEMIDE [Concomitant]
     Active Substance: TORSEMIDE
  23. CLONIDINE [Concomitant]
     Active Substance: CLONIDINE
  24. HYDROCORTISONE [Concomitant]
     Active Substance: HYDROCORTISONE
  25. LIDOCAINE [Concomitant]
     Active Substance: LIDOCAINE
  26. MUCINEX [Concomitant]
     Active Substance: GUAIFENESIN
  27. ATOVAQUONE [Concomitant]
     Active Substance: ATOVAQUONE
  28. ALUMINUM CHLORIDE [Concomitant]
     Active Substance: ALUMINUM CHLORIDE
  29. VIMPAT [Concomitant]
     Active Substance: LACOSAMIDE
  30. PROTOPIC [Concomitant]
     Active Substance: TACROLIMUS
  31. ALBUTEROL SULFATE [Concomitant]
     Active Substance: ALBUTEROL SULFATE
  32. GRALISE [Concomitant]
     Active Substance: GABAPENTIN
  33. OSCIMIN [Concomitant]
     Active Substance: HYOSCYAMINE SULFATE
  34. CALCIUM [Concomitant]
     Active Substance: CALCIUM
  35. DUPIXENT [Concomitant]
     Active Substance: DUPILUMAB
  36. DIPHENHYDRAMINE HYDROCHLORIDE [Concomitant]
     Active Substance: DIPHENHYDRAMINE HYDROCHLORIDE
  37. ENALAPRIL MALEATE [Concomitant]
     Active Substance: ENALAPRIL MALEATE
  38. CARBAMAZEPINE [Concomitant]
     Active Substance: CARBAMAZEPINE
  39. LUNESTA [Concomitant]
     Active Substance: ESZOPICLONE
  40. PRASTERONE [Concomitant]
     Active Substance: PRASTERONE
  41. COMBIGAN [Concomitant]
     Active Substance: BRIMONIDINE TARTRATE\TIMOLOL MALEATE
  42. LUMIGAN [Concomitant]
     Active Substance: BIMATOPROST
  43. QVAR REDIHALER [Concomitant]
     Active Substance: BECLOMETHASONE DIPROPIONATE
  44. IPRATROPIUM BROMIDE [Concomitant]
     Active Substance: IPRATROPIUM BROMIDE
  45. BACLOFEN [Concomitant]
     Active Substance: BACLOFEN
  46. DIPHENHYDRAMINE [Concomitant]
     Active Substance: DIPHENHYDRAMINE
  47. LIDOCAINE\PRILOCAINE [Concomitant]
     Active Substance: LIDOCAINE\PRILOCAINE
  48. FORTEO [Concomitant]
     Active Substance: TERIPARATIDE
  49. AZELASTINE [Concomitant]
     Active Substance: AZELASTINE
  50. AZITHROMYCIN [Concomitant]
     Active Substance: AZITHROMYCIN
  51. PLAQUENIL [Concomitant]
     Active Substance: HYDROXYCHLOROQUINE SULFATE
  52. URIBEL [Concomitant]
     Active Substance: HYOSCYAMINE SULFATE\METHENAMINE\METHYLENE BLUE\PHENYL SALICYLATE\SODIUM PHOSPHATE, MONOBASIC, MONOHY
  53. PROMETHAZINE [Concomitant]
     Active Substance: PROMETHAZINE HYDROCHLORIDE
  54. POTASSIUM [Concomitant]
     Active Substance: POTASSIUM
  55. ALBUTEROL [Concomitant]
     Active Substance: ALBUTEROL
  56. FASENRA [Concomitant]
     Active Substance: BENRALIZUMAB
  57. PROMETHAZINE HYDROCHLORIDE [Concomitant]
     Active Substance: PROMETHAZINE HYDROCHLORIDE
  58. ASPIRIN [Concomitant]
     Active Substance: ASPIRIN
  59. CHLORTHALIDONE [Concomitant]
     Active Substance: CHLORTHALIDONE
  60. TACROLIMUS [Concomitant]
     Active Substance: TACROLIMUS
  61. BUDESONIDE [Concomitant]
     Active Substance: BUDESONIDE
  62. EVENITY [Concomitant]
     Active Substance: ROMOSOZUMAB-AQQG
  63. ALPHA LIPOIC ACID [Concomitant]
     Active Substance: .ALPHA.-LIPOIC ACID
  64. HYOSCYAMINE SULFATE [Concomitant]
     Active Substance: HYOSCYAMINE SULFATE
  65. OMEPRAZOLE [Concomitant]
     Active Substance: OMEPRAZOLE
  66. ONDANSETRON HYDROCHLORIDE [Concomitant]
     Active Substance: ONDANSETRON HYDROCHLORIDE
  67. FLUDROCORTISONE ACETATE [Concomitant]
     Active Substance: FLUDROCORTISONE ACETATE

REACTIONS (16)
  - Hyponatraemia [Unknown]
  - Acute kidney injury [Unknown]
  - Vomiting [Unknown]
  - Nausea [Unknown]
  - Infection [Not Recovered/Not Resolved]
  - Eye abrasion [Unknown]
  - Urinary tract infection [Unknown]
  - Herpes zoster [Unknown]
  - Dermatitis contact [Unknown]
  - Skin laceration [Unknown]
  - Product dose omission issue [Unknown]
  - Ear infection [Unknown]
  - Upper respiratory tract infection [Not Recovered/Not Resolved]
  - Sinusitis [Not Recovered/Not Resolved]
  - Injection site erythema [Unknown]
  - Contusion [Unknown]

NARRATIVE: CASE EVENT DATE: 20200313
